FAERS Safety Report 8581649-1 (Version None)
Quarter: 2012Q3

REPORT INFORMATION
  Report Type: 
  Country: None (occurrence: None)
  Receive Date: 20120809
  Receipt Date: 20120726
  Transmission Date: 20120928
  Serious: Yes (Other)
  Sender: FDA-Public Use
  Company Number: CN-ASTRAZENECA-2012SE55827

PATIENT
  Sex: Female
  Weight: 52 kg

DRUGS (3)
  1. CLARITHROMYCIN [Concomitant]
     Route: 048
  2. NEXIUM [Suspect]
     Route: 048
  3. AMOXICILLIN [Concomitant]
     Route: 048

REACTIONS (2)
  - SHOCK [None]
  - ABDOMINAL PAIN [None]
